FAERS Safety Report 12375846 (Version 1)
Quarter: 2016Q2

REPORT INFORMATION
  Report Type: Spontaneous
  Country: PE (occurrence: PE)
  Receive Date: 20160517
  Receipt Date: 20160517
  Transmission Date: 20160815
  Serious: Yes (Hospitalization, Other)
  Sender: FDA-Public Use
  Company Number: PE-GLAXOSMITHKLINE-PE2016GSK068747

PATIENT
  Age: 80 Year
  Sex: Female

DRUGS (1)
  1. SERETIDE [Suspect]
     Active Substance: FLUTICASONE PROPIONATE\SALMETEROL XINAFOATE
     Indication: PULMONARY FIBROSIS
     Dosage: 250 ?G, BID
     Route: 055
     Dates: start: 20100527

REACTIONS (7)
  - Abasia [Unknown]
  - Dysarthria [Unknown]
  - Cerebrovascular accident [Not Recovered/Not Resolved]
  - Speech disorder [Unknown]
  - Condition aggravated [Unknown]
  - Hemiplegia [Unknown]
  - Aphasia [Unknown]

NARRATIVE: CASE EVENT DATE: 20151030
